FAERS Safety Report 9283496 (Version 1)
Quarter: 2013Q2

REPORT INFORMATION
  Report Type: Spontaneous
  Country: US (occurrence: US)
  Receive Date: 20130510
  Receipt Date: 20130510
  Transmission Date: 20140414
  Serious: No
  Sender: FDA-Public Use
  Company Number: US-GLAXOSMITHKLINE-A1012674A

PATIENT
  Age: 46 Year
  Sex: Female

DRUGS (8)
  1. TYKERB [Suspect]
     Indication: BREAST CANCER
     Dosage: 6TAB PER DAY
     Route: 048
     Dates: start: 20130121, end: 20130201
  2. FEMARA [Concomitant]
  3. XGEVA [Concomitant]
  4. ZOLADEX [Concomitant]
  5. HERCEPTIN [Concomitant]
  6. MULTIVITAMIN [Concomitant]
  7. MELATONIN [Concomitant]
  8. VITAMIN D [Concomitant]

REACTIONS (1)
  - Urticaria [Recovered/Resolved]
